FAERS Safety Report 9045550 (Version 1)
Quarter: 2013Q1

REPORT INFORMATION
  Report Type: Spontaneous
  Country: KR (occurrence: KR)
  Receive Date: 20130131
  Receipt Date: 20130131
  Transmission Date: 20140127
  Serious: Yes (Hospitalization)
  Sender: FDA-Public Use
  Company Number: KR-B.I. PHARMACEUTICALS,INC./RIDGEFIELD-2013-CS-00117RK

PATIENT
  Age: 72 None
  Sex: Female

DRUGS (7)
  1. PRADAXA [Suspect]
     Indication: ATRIAL FIBRILLATION
     Dosage: 300 MG
     Route: 048
     Dates: start: 20130104
  2. PRADAXA [Suspect]
     Indication: CEREBRAL INFARCTION
  3. TORASEMIDE [Concomitant]
     Indication: BLOOD PRESSURE MANAGEMENT
     Route: 048
  4. PERINDOPRIL [Concomitant]
     Indication: BLOOD PRESSURE MANAGEMENT
     Dosage: 4 MG
     Route: 048
  5. CONCOR [Concomitant]
     Indication: BLOOD PRESSURE MANAGEMENT
     Dosage: 5 MG
     Route: 048
  6. DIABEX [Concomitant]
     Dosage: 1000 MG
     Route: 048
  7. GALVUS [Concomitant]

REACTIONS (1)
  - Cerebral infarction [Unknown]
